FAERS Safety Report 12448505 (Version 1)
Quarter: 2016Q2

REPORT INFORMATION
  Report Type: Spontaneous
  Country: US (occurrence: US)
  Receive Date: 20160608
  Receipt Date: 20160608
  Transmission Date: 20160815
  Serious: No
  Sender: FDA-Public Use
  Company Number: US-ADAPT PHARMA INC-2016ADP00006

PATIENT
  Sex: Female

DRUGS (2)
  1. NARCAN [Suspect]
     Active Substance: NALOXONE HYDROCHLORIDE
     Indication: OVERDOSE
     Dosage: UNK, UNK
     Route: 045
     Dates: start: 2016, end: 2016
  2. FENTANYL. [Suspect]
     Active Substance: FENTANYL
     Dosage: UNK, UNK
     Route: 065

REACTIONS (1)
  - Feeling abnormal [Unknown]

NARRATIVE: CASE EVENT DATE: 2016
